FAERS Safety Report 19002902 (Version 2)
Quarter: 2021Q3

REPORT INFORMATION
  Report Type: Spontaneous
  Country: DE (occurrence: DE)
  Receive Date: 20210312
  Receipt Date: 20210701
  Transmission Date: 20211014
  Serious: Yes (Hospitalization, Other)
  Sender: FDA-Public Use
  Company Number: DE-PFIZER INC-2021242123

PATIENT
  Age: 73 Year
  Sex: Male

DRUGS (7)
  1. OMEPRAZOL [Concomitant]
     Active Substance: OMEPRAZOLE
     Dosage: 20 MG, 1?0?0?0
  2. ASPIRIN. [Suspect]
     Active Substance: ASPIRIN
     Dosage: 100 MG, ONCE A DAY (1?0?0?0)
  3. ATORVASTATIN [Concomitant]
     Active Substance: ATORVASTATIN
     Dosage: 40 MG, 0?0?1?0
  4. ELIGARD [Suspect]
     Active Substance: LEUPROLIDE ACETATE
     Dosage: 22.5 MG (3?MONTH DEPOT)
     Route: 058
  5. METHOTREXATE SODIUM. [Suspect]
     Active Substance: METHOTREXATE SODIUM
     Dosage: 10 MG
     Dates: end: 20201211
  6. TERBINAFIN [Suspect]
     Active Substance: TERBINAFINE
     Dosage: 125 MG, ONCE A DAY (0?0?1?0)
  7. METOPROLOL. [Concomitant]
     Active Substance: METOPROLOL
     Dosage: FREQ:12 H;23.75 MG, 1?0?1?0

REACTIONS (5)
  - Tongue discomfort [Unknown]
  - Product prescribing error [Unknown]
  - Pancytopenia [Unknown]
  - Epistaxis [Unknown]
  - Decreased appetite [Unknown]
